FAERS Safety Report 15899805 (Version 1)
Quarter: 2019Q1

REPORT INFORMATION
  Report Type: Spontaneous
  Country: US (occurrence: US)
  Receive Date: 20190201
  Receipt Date: 20190201
  Transmission Date: 20190417
  Serious: Yes (Disabling)
  Sender: FDA-Public Use
  Company Number: US-PFIZER INC-2019037812

PATIENT
  Age: 74 Year
  Sex: Female
  Weight: 61 kg

DRUGS (4)
  1. GABAPENTIN. [Suspect]
     Active Substance: GABAPENTIN
     Dosage: 800 MG, 2X/DAY (THE NEXT DAY SHE SHOULD MISS THE MORNING AND NOON DOSE AND TAKE PM AND BEDTIME DOSE)
     Dates: start: 2012, end: 2012
  2. GABAPENTIN. [Suspect]
     Active Substance: GABAPENTIN
     Indication: PAIN IN EXTREMITY
     Dosage: 800 MG, 4X/DAY (MORNING, NOON, PM AND BEDTIME DOSE)
     Dates: start: 2012, end: 2012
  3. GABAPENTIN. [Suspect]
     Active Substance: GABAPENTIN
     Dosage: 800 MG, 3X/DAY (TOMORROW SHE SHOULD MISS THE MORNING DOSE AND TAKE THE NOON, PM AND BEDTIME DOSE)
     Dates: start: 2012, end: 2012
  4. GABAPENTIN. [Suspect]
     Active Substance: GABAPENTIN
     Dosage: 800 MG, 1X/DAY  (NEXT DAY SHE WOULD TAKE ONLY THE BEDTIME DOSE)
     Dates: start: 2012

REACTIONS (1)
  - Drug ineffective for unapproved indication [Unknown]

NARRATIVE: CASE EVENT DATE: 2012
